FAERS Safety Report 5367680-8 (Version None)
Quarter: 2007Q2

REPORT INFORMATION
  Report Type: 
  Country: None (occurrence: None)
  Receive Date: 20070622
  Receipt Date: 20070112
  Transmission Date: 20071010
  Serious: No
  Sender: FDA-Public Use
  Company Number: US-ASTRAZENECA-2007UW00682

PATIENT
  Age: 66 Year
  Sex: Female
  Weight: 76.2 kg

DRUGS (5)
  1. PULMICORT [Suspect]
     Indication: ASTHMA
     Route: 055
     Dates: start: 20040101
  2. DIOVAN [Concomitant]
  3. PREVACID [Concomitant]
  4. PREMARIN [Concomitant]
  5. VERAPAMIL [Concomitant]

REACTIONS (1)
  - PULMONARY CONGESTION [None]
